FAERS Safety Report 25180462 (Version 3)
Quarter: 2025Q2

REPORT INFORMATION
  Report Type: Spontaneous
  Country: US (occurrence: US)
  Receive Date: 20250409
  Receipt Date: 20250605
  Transmission Date: 20250717
  Serious: Yes (Other)
  Sender: ZO SKIN HEALTH
  Company Number: US-ZO SKIN HEALTH-2025ZOS00035

PATIENT
  Age: 53 Year
  Sex: Female
  Weight: 55.782 kg

DRUGS (10)
  1. HYDROQUINONE [Suspect]
     Active Substance: HYDROQUINONE
     Route: 061
     Dates: start: 20250325, end: 20250325
  2. HYDROQUINONE [Suspect]
     Active Substance: HYDROQUINONE
     Route: 061
     Dates: start: 20250325, end: 20250325
  3. RETINOL [Suspect]
     Active Substance: RETINOL
     Route: 061
     Dates: start: 20250325, end: 20250325
  4. COSMETICS [Suspect]
     Active Substance: COSMETICS
     Route: 061
     Dates: start: 20250325, end: 20250325
  5. COSMETICS [Suspect]
     Active Substance: COSMETICS
     Route: 061
     Dates: start: 20250325, end: 20250325
  6. ZINC OXIDE [Suspect]
     Active Substance: ZINC OXIDE
     Route: 061
     Dates: start: 20250325, end: 20250325
  7. COSMETICS [Suspect]
     Active Substance: COSMETICS
     Route: 061
     Dates: start: 20250325, end: 20250325
  8. COSMETICS [Suspect]
     Active Substance: COSMETICS
     Route: 061
     Dates: start: 20250325, end: 20250325
  9. COSMETICS [Suspect]
     Active Substance: COSMETICS
     Route: 061
     Dates: start: 20250325, end: 20250325
  10. COSMETICS [Suspect]
     Active Substance: COSMETICS
     Route: 061
     Dates: start: 20250325, end: 20250325

REACTIONS (4)
  - Eye swelling [Recovered/Resolved]
  - Swelling face [Recovered/Resolved]
  - Hypersensitivity [Recovered/Resolved]
  - Swelling [Recovered/Resolved]

NARRATIVE: CASE EVENT DATE: 20250325
